FAERS Safety Report 5850627-5 (Version None)
Quarter: 2008Q3

REPORT INFORMATION
  Report Type: 
  Country: None (occurrence: None)
  Receive Date: 20080818
  Receipt Date: 20080805
  Transmission Date: 20090109
  Serious: Yes (Hospitalization)
  Sender: FDA-Public Use
  Company Number: WAES 0808USA01418

PATIENT
  Age: 82 Year
  Sex: Female

DRUGS (8)
  1. ZETIA [Suspect]
     Indication: HYPERCHOLESTEROLAEMIA
     Dosage: 10 MG/ DAILY PO
     Route: 048
     Dates: start: 20080419, end: 20080703
  2. ZETIA [Suspect]
     Indication: HYPERCHOLESTEROLAEMIA
     Dosage: 10 MG/ DAILY PO
     Route: 048
     Dates: start: 20080719
  3. THERAPY UNSPECIFIED [Concomitant]
  4. DONEPEZIL HCL [Concomitant]
  5. LEVOGLUTAMIDE (+) SODIUM GUALENATE [Concomitant]
  6. NIFEDIPINE [Concomitant]
  7. PRAVASTATIN SODIUM [Concomitant]
  8. VALSARTAN [Concomitant]

REACTIONS (1)
  - INFECTION [None]
